FAERS Safety Report 5823295-6 (Version None)
Quarter: 2008Q3

REPORT INFORMATION
  Report Type: 
  Country: None (occurrence: None)
  Receive Date: 20080725
  Receipt Date: 20080716
  Transmission Date: 20090109
  Serious: Yes (Other)
  Sender: FDA-Public Use
  Company Number: DE-JNJFOC-20080601172

PATIENT
  Age: 35 Year
  Sex: Male
  Weight: 75 kg

DRUGS (3)
  1. REMICADE [Suspect]
     Indication: ANKYLOSING SPONDYLITIS
     Route: 042
  2. IBUPROFEN TABLETS [Concomitant]
  3. TRAMAL [Concomitant]
     Indication: PAIN

REACTIONS (3)
  - FACE OEDEMA [None]
  - INFUSION RELATED REACTION [None]
  - PALPITATIONS [None]
